FAERS Safety Report 6107637-2 (Version None)
Quarter: 2009Q1

REPORT INFORMATION
  Report Type: 
  Country: None (occurrence: None)
  Receive Date: 20090306
  Receipt Date: 20090306
  Transmission Date: 20090719
  Serious: Yes (Other)
  Sender: FDA-Public Use
  Company Number: None

PATIENT
  Sex: Female
  Weight: 83.0083 kg

DRUGS (1)
  1. MIRAPEX [Suspect]
     Indication: RESTLESS LEGS SYNDROME
     Dosage: 1 TABLET AT BEDTIME EVERY NIGHT
     Dates: start: 20090116, end: 20090216

REACTIONS (6)
  - ABNORMAL BEHAVIOUR [None]
  - DYSKINESIA [None]
  - FEAR [None]
  - HALLUCINATIONS, MIXED [None]
  - INITIAL INSOMNIA [None]
  - PARAESTHESIA [None]
